FAERS Safety Report 8123511-4 (Version None)
Quarter: 2012Q1

REPORT INFORMATION
  Report Type: 
  Country: None (occurrence: None)
  Receive Date: 20120208
  Receipt Date: 20120201
  Transmission Date: 20120608
  Serious: Yes (Other)
  Sender: FDA-Public Use
  Company Number: PHHY2011US48839

PATIENT
  Sex: Female

DRUGS (11)
  1. ZETIA [Concomitant]
     Dosage: 10 MG, UNK
  2. GILENYA [Suspect]
     Indication: MULTIPLE SCLEROSIS
     Dosage: 0.5 MG, DAILY
     Route: 048
     Dates: start: 20110321
  3. BENICAR [Concomitant]
     Indication: HYPERTENSION
     Dosage: 40 MG, QD
     Route: 048
  4. PAXIL [Concomitant]
     Indication: DEPRESSION
     Dosage: 20 MG, UNK
     Route: 048
  5. ENABLEX [Concomitant]
     Dosage: UNK UKN, UNK
  6. ZYPREXA [Concomitant]
     Indication: ANXIETY
     Dosage: 2.5 MG, QHS
     Route: 048
  7. FERROUS SULFATE TAB [Concomitant]
     Dosage: UNK UKN, UNK
  8. HYDROCHLOROTHIAZIDE [Concomitant]
     Indication: HYPERTENSION
     Dosage: 12.5 OT, QD
     Route: 048
  9. LEVOXYL [Concomitant]
     Indication: HYPOTHYROIDISM
     Dosage: 150 UG, QD
     Route: 048
  10. WELCHOL [Concomitant]
     Indication: BLOOD CHOLESTEROL INCREASED
     Dosage: UNK UKN, UNK
  11. INSULIN [Concomitant]
     Dosage: UNK UKN, UNK

REACTIONS (13)
  - VOMITING [None]
  - LIP PAIN [None]
  - GAIT DISTURBANCE [None]
  - NASOPHARYNGITIS [None]
  - FALL [None]
  - LIP INJURY [None]
  - HEADACHE [None]
  - COORDINATION ABNORMAL [None]
  - TRANSAMINASES INCREASED [None]
  - CONTUSION [None]
  - ABDOMINAL PAIN [None]
  - AMMONIA INCREASED [None]
  - AMNESIA [None]
